FAERS Safety Report 6280766-9 (Version None)
Quarter: 2009Q3

REPORT INFORMATION
  Report Type: 
  Country: None (occurrence: None)
  Receive Date: 20090724
  Receipt Date: 20090116
  Transmission Date: 20100115
  Serious: Yes (Hospitalization)
  Sender: FDA-Public Use
  Company Number: A0764844A

PATIENT
  Age: 77 Year
  Sex: Male
  Weight: 104.5 kg

DRUGS (2)
  1. AVANDIA [Suspect]
     Dosage: 4MG TWICE PER DAY
     Route: 065
     Dates: start: 20030101, end: 20040601
  2. GLUCOPHAGE [Concomitant]
     Dates: start: 19940101, end: 20060101

REACTIONS (1)
  - CARDIAC FAILURE CONGESTIVE [None]
